FAERS Safety Report 19083836 (Version 1)
Quarter: 2021Q2

REPORT INFORMATION
  Report Type: Spontaneous
  Country: US (occurrence: US)
  Receive Date: 20210401
  Receipt Date: 20210401
  Transmission Date: 20210717
  Serious: No
  Sender: FDA-Public Use
  Company Number: US-EISAI MEDICAL RESEARCH-EC-2021-090096

PATIENT
  Age: 63 Year
  Sex: Male
  Weight: 113 kg

DRUGS (1)
  1. DAYVIGO [Suspect]
     Active Substance: LEMBOREXANT
     Indication: INSOMNIA
     Route: 048
     Dates: start: 20201109, end: 20201111

REACTIONS (1)
  - Sleep paralysis [Recovered/Resolved]

NARRATIVE: CASE EVENT DATE: 20201110
